FAERS Safety Report 8602037 (Version 5)
Quarter: 2014Q1

REPORT INFORMATION
  Report Type: Spontaneous
  Country: US (occurrence: US)
  Receive Date: 20120607
  Receipt Date: 20140114
  Transmission Date: 20141002
  Serious: Yes (Hospitalization, Other)
  Sender: FDA-Public Use
  Company Number: US-ASTRAZENECA-2012SE36167

PATIENT
  Age: 38 Year
  Sex: Female

DRUGS (25)
  1. NEXIUM [Suspect]
     Indication: ABDOMINAL PAIN UPPER
     Dosage: ONCE A DAY
     Route: 048
     Dates: start: 2006, end: 2011
  2. NEXIUM [Suspect]
     Indication: GASTROOESOPHAGEAL REFLUX DISEASE
     Dosage: ONCE A DAY
     Route: 048
     Dates: start: 2006, end: 2011
  3. NEXIUM [Suspect]
     Indication: ABDOMINAL PAIN UPPER
     Route: 048
     Dates: start: 20070323
  4. NEXIUM [Suspect]
     Indication: GASTROOESOPHAGEAL REFLUX DISEASE
     Route: 048
     Dates: start: 20070323
  5. NEXIUM [Suspect]
     Indication: ABDOMINAL PAIN UPPER
     Route: 048
     Dates: start: 2007, end: 2011
  6. NEXIUM [Suspect]
     Indication: GASTROOESOPHAGEAL REFLUX DISEASE
     Route: 048
     Dates: start: 2007, end: 2011
  7. OMEPRAZOLE [Suspect]
     Indication: ABDOMINAL PAIN UPPER
     Dosage: ONCE A DAY
     Route: 048
  8. OMEPRAZOLE [Suspect]
     Indication: GASTROOESOPHAGEAL REFLUX DISEASE
     Dosage: ONCE A DAY
     Route: 048
  9. PRAVASTATIN [Concomitant]
     Route: 048
     Dates: start: 20071013
  10. TAGAMET [Concomitant]
     Dates: start: 1980
  11. TAGAMET [Concomitant]
     Dates: start: 1981, end: 1983
  12. TUMS [Concomitant]
     Dates: start: 1990
  13. SYNTHROID/ LEVOTHYROXINE [Concomitant]
     Indication: THYROID DISORDER
  14. CRESTOR [Concomitant]
     Indication: BLOOD CHOLESTEROL
  15. BABY ASPIRIN [Concomitant]
     Indication: CARDIAC DISORDER
     Dosage: ONCE A DAY
  16. TRAZADONE [Concomitant]
     Indication: SLEEP DISORDER
  17. AMBIEN [Concomitant]
  18. ACYCLOVIR [Concomitant]
  19. ACENTOMATE [Concomitant]
  20. NORCO [Concomitant]
     Indication: PAIN
  21. FLUDROCORTISONE [Concomitant]
  22. VITAMIN D [Concomitant]
  23. RISPERDAL [Concomitant]
     Indication: HISTRIONIC PERSONALITY DISORDER
  24. VITAMIN C [Concomitant]
  25. FOSAMAX [Concomitant]

REACTIONS (22)
  - Cervical vertebral fracture [Unknown]
  - Ankle fracture [Unknown]
  - Ligament sprain [Unknown]
  - Cerebrovascular accident [Unknown]
  - Back disorder [Unknown]
  - Gastrointestinal disorder [Unknown]
  - Depression [Unknown]
  - Osteoporosis [Unknown]
  - Bone density decreased [Unknown]
  - Osteopenia [Unknown]
  - Foot fracture [Unknown]
  - Road traffic accident [Unknown]
  - Fall [Unknown]
  - Calcium deficiency [Unknown]
  - Cataract [Unknown]
  - Chronic obstructive pulmonary disease [Unknown]
  - Hyperparathyroidism [Unknown]
  - Hypothyroidism [Unknown]
  - Vitamin D deficiency [Unknown]
  - Musculoskeletal pain [Unknown]
  - Blood cholesterol increased [Unknown]
  - Bone disorder [Unknown]
